FAERS Safety Report 5712852-3 (Version None)
Quarter: 2008Q2

REPORT INFORMATION
  Report Type: 
  Country: None (occurrence: None)
  Receive Date: 20080422
  Receipt Date: 20080418
  Transmission Date: 20081010
  Serious: Yes (Other)
  Sender: FDA-Public Use
  Company Number: B0510133A

PATIENT
  Age: 13 Year
  Sex: Male
  Weight: 65 kg

DRUGS (3)
  1. RELENZA [Suspect]
     Indication: INFLUENZA
     Dosage: 10MG TWICE PER DAY
     Route: 055
     Dates: start: 20080222, end: 20080222
  2. CHINESE MEDICINE [Concomitant]
     Indication: DRUG USE FOR UNKNOWN INDICATION
     Dosage: 2G THREE TIMES PER DAY
     Route: 048
  3. COCARL [Concomitant]
     Indication: INFLUENZA
     Dosage: 2TAB PER DAY
     Route: 065
     Dates: start: 20080222

REACTIONS (4)
  - ABNORMAL BEHAVIOUR [None]
  - AMNESIA [None]
  - DELIRIUM [None]
  - SERUM AMYLOID A PROTEIN INCREASED [None]
